FAERS Safety Report 23818068 (Version 8)
Quarter: 2025Q4

REPORT INFORMATION
  Report Type: Spontaneous
  Country: US (occurrence: US)
  Receive Date: 20240506
  Receipt Date: 20251208
  Transmission Date: 20260117
  Serious: No
  Sender: BIOGEN
  Company Number: US-BIOGEN-2024BI01255538

PATIENT
  Age: 51 Year
  Sex: Male

DRUGS (4)
  1. SKYCLARYS [Suspect]
     Active Substance: OMAVELOXOLONE
     Indication: Friedreich^s ataxia
     Dates: start: 20231101
  2. SKYCLARYS [Suspect]
     Active Substance: OMAVELOXOLONE
     Dates: start: 20231030, end: 20240214
  3. SKYCLARYS [Suspect]
     Active Substance: OMAVELOXOLONE
  4. SKYCLARYS [Suspect]
     Active Substance: OMAVELOXOLONE
     Dosage: NDC #: 64406-0250-90
     Dates: start: 20250305

REACTIONS (3)
  - Blood cholesterol increased [Unknown]
  - Alanine aminotransferase increased [Unknown]
  - Aspartate aminotransferase increased [Unknown]

NARRATIVE: CASE EVENT DATE: 20231101
